FAERS Safety Report 6387077-1 (Version None)
Quarter: 2009Q4

REPORT INFORMATION
  Report Type: 
  Country: None (occurrence: None)
  Receive Date: 20091002
  Receipt Date: 20090925
  Transmission Date: 20100525
  Serious: Yes (Death, Hospitalization)
  Sender: FDA-Public Use
  Company Number: US-AVENTIS-200914437US

PATIENT
  Age: 89 Year
  Sex: Male

DRUGS (2)
  1. LANTUS [Suspect]
     Route: 058
  2. OPTICLIK (INSULIN INJECTION PEN) [Suspect]

REACTIONS (4)
  - BLOOD GLUCOSE INCREASED [None]
  - CARDIAC FAILURE CONGESTIVE [None]
  - DEATH [None]
  - PRODUCT QUALITY ISSUE [None]
